FAERS Safety Report 5515388-8 (Version None)
Quarter: 2007Q4

REPORT INFORMATION
  Report Type: 
  Country: None (occurrence: None)
  Receive Date: 20071109
  Receipt Date: 20071107
  Transmission Date: 20080405
  Serious: Yes (Life-Threatening, Hospitalization, Other)
  Sender: FDA-Public Use
  Company Number: THQ2007A00971

PATIENT
  Age: 32 Year
  Sex: Female

DRUGS (3)
  1. PIOGLITAZONE HCL [Suspect]
     Dosage: 105 MG, OTHER PER ORAL
     Route: 048
     Dates: start: 20070914, end: 20070914
  2. ALCOHOL (ETHANOL) [Concomitant]
  3. SUPRADOL (KETOROLAC TROMETHAMINE) [Concomitant]

REACTIONS (19)
  - BLOOD GLUCOSE INCREASED [None]
  - GAIT DISTURBANCE [None]
  - GLASGOW COMA SCALE ABNORMAL [None]
  - GRAND MAL CONVULSION [None]
  - HEADACHE [None]
  - HYPERHIDROSIS [None]
  - HYPOGLYCAEMIA [None]
  - HYPOREFLEXIA [None]
  - HYPOTONIA [None]
  - INTENTIONAL OVERDOSE [None]
  - LOSS OF CONSCIOUSNESS [None]
  - MIOSIS [None]
  - MUSCLE RIGIDITY [None]
  - PALLOR [None]
  - RESPIRATORY RATE INCREASED [None]
  - SPEECH DISORDER [None]
  - SUICIDE ATTEMPT [None]
  - TACHYCARDIA [None]
  - UNRESPONSIVE TO STIMULI [None]
